FAERS Safety Report 8868185 (Version 1)
Quarter: 2012Q4

REPORT INFORMATION
  Report Type: 
  Country: US (occurrence: US)
  Receive Date: 20121025
  Receipt Date: 20121025
  Transmission Date: 20130627
  Serious: No
  Sender: FDA-Public Use
  Company Number: US-AMGEN-USASP2012019196

PATIENT
  Sex: Female

DRUGS (6)
  1. ENBREL [Suspect]
     Indication: PRODUCT USED FOR UNKNOWN INDICATION
     Dosage: 50 mg, qwk
  2. PREDNISONE [Concomitant]
     Dosage: 2.5 mg, UNK
  3. LOSARTAN/HCT [Concomitant]
     Dosage: 100-25, UNK
  4. VITAMIN B12                        /00056201/ [Concomitant]
     Dosage: UNK
  5. CALCIUM D                          /01483701/ [Concomitant]
     Dosage: UNK
  6. FIORINAL WITH CODEINE [Concomitant]
     Dosage: 325-40-5, UNK

REACTIONS (1)
  - Injection site reaction [Unknown]
